FAERS Safety Report 5590204-7 (Version None)
Quarter: 2008Q1

REPORT INFORMATION
  Report Type: 
  Country: None (occurrence: None)
  Receive Date: 20080114
  Receipt Date: 20080107
  Transmission Date: 20080703
  Serious: Yes (Hospitalization)
  Sender: FDA-Public Use
  Company Number: US-ASTRAZENECA-2008UW00437

PATIENT
  Age: 43 Year
  Sex: Female
  Weight: 59 kg

DRUGS (7)
  1. SEROQUEL [Suspect]
     Indication: BIPOLAR DISORDER
     Route: 048
     Dates: start: 20060401
  2. LACTULOSE [Concomitant]
  3. ALDACTONE [Concomitant]
  4. ZOLOFT [Concomitant]
  5. CAMPRAL [Concomitant]
  6. POTASSIUM [Concomitant]
  7. LAMICTAL [Concomitant]

REACTIONS (8)
  - ABDOMINAL PAIN [None]
  - ANAEMIA [None]
  - DYSPEPSIA [None]
  - EPISTAXIS [None]
  - HYPOTENSION [None]
  - INSOMNIA [None]
  - LIVER DISORDER [None]
  - RASH [None]
